FAERS Safety Report 6510716-9 (Version None)
Quarter: 2009Q4

REPORT INFORMATION
  Report Type: 
  Country: None (occurrence: None)
  Receive Date: 20091222
  Receipt Date: 20091022
  Transmission Date: 20100525
  Serious: No
  Sender: FDA-Public Use
  Company Number: US-ASTRAZENECA-2009SE21883

PATIENT
  Age: 702 Month
  Sex: Female
  Weight: 69.4 kg

DRUGS (2)
  1. CRESTOR [Suspect]
     Indication: BLOOD CHOLESTEROL INCREASED
     Route: 048
     Dates: start: 20060101, end: 20090201
  2. CRESTOR [Suspect]
     Route: 048
     Dates: start: 20090201

REACTIONS (6)
  - COUGH [None]
  - LOW DENSITY LIPOPROTEIN ABNORMAL [None]
  - PNEUMONIA [None]
  - RHEUMATOID FACTOR INCREASED [None]
  - THROMBOCYTOSIS [None]
  - WHEEZING [None]
